FAERS Safety Report 8761199 (Version 3)
Quarter: 2015Q1

REPORT INFORMATION
  Report Type: Spontaneous
  Country: US (occurrence: US)
  Receive Date: 20120830
  Receipt Date: 20150305
  Transmission Date: 20150721
  Serious: Yes (Hospitalization, Disabling, Other)
  Sender: FDA-Public Use
  Company Number: US-009507513-1208USA008535

PATIENT
  Sex: Female

DRUGS (1)
  1. FOSAMAX [Suspect]
     Active Substance: ALENDRONATE SODIUM
     Indication: OSTEOPOROSIS
     Dosage: 70 MG, UNK
     Route: 048
     Dates: start: 2000, end: 2010

REACTIONS (4)
  - Femur fracture [Not Recovered/Not Resolved]
  - Adverse event [Unknown]
  - Surgery [Unknown]
  - Angiopathy [Unknown]

NARRATIVE: CASE EVENT DATE: 2009
